FAERS Safety Report 21527194 (Version 2)
Quarter: 2023Q1

REPORT INFORMATION
  Report Type: Report from Study
  Country: US (occurrence: US)
  Receive Date: 20221031
  Receipt Date: 20230130
  Transmission Date: 20230418
  Serious: No
  Sender: FDA-Public Use
  Company Number: US-ABBVIE-4131815

PATIENT
  Sex: Female
  Weight: 70 kg

DRUGS (3)
  1. RINVOQ [Suspect]
     Active Substance: UPADACITINIB
     Indication: Rheumatoid arthritis
     Route: 048
  2. RINVOQ [Suspect]
     Active Substance: UPADACITINIB
     Indication: Rheumatoid arthritis
     Route: 048
  3. JANSSEN COVID-19 VACCINE [Concomitant]
     Active Substance: AD26.COV2.S
     Indication: Rheumatoid arthritis
     Dosage: ONE IN ONCE
     Route: 030

REACTIONS (4)
  - Hepatic enzyme increased [Unknown]
  - Musculoskeletal stiffness [Recovered/Resolved]
  - Trigger finger [Unknown]
  - Pain in extremity [Unknown]
